APPROVED DRUG PRODUCT: RIZATRIPTAN BENZOATE
Active Ingredient: RIZATRIPTAN BENZOATE
Strength: EQ 5MG BASE
Dosage Form/Route: TABLET, ORALLY DISINTEGRATING;ORAL
Application: A203062 | Product #001 | TE Code: AB
Applicant: AUROBINDO PHARMA LTD
Approved: Jul 1, 2013 | RLD: No | RS: No | Type: RX